FAERS Safety Report 5485248-X (Version None)
Quarter: 2007Q4

REPORT INFORMATION
  Report Type: 
  Country: None (occurrence: None)
  Receive Date: 20071010
  Receipt Date: 20071010
  Transmission Date: 20080405
  Serious: Yes (Life-Threatening, Hospitalization)
  Sender: FDA-Public Use
  Company Number: None

PATIENT
  Age: 42 Year
  Sex: Female
  Weight: 51.7101 kg

DRUGS (1)
  1. NUVARING [Suspect]
     Indication: MENOPAUSE
     Dates: start: 20070909, end: 20071007

REACTIONS (1)
  - DEEP VEIN THROMBOSIS [None]
